FAERS Safety Report 7515942-8 (Version None)
Quarter: 2011Q2

REPORT INFORMATION
  Report Type: 
  Country: None (occurrence: None)
  Receive Date: 20110601
  Receipt Date: 20110523
  Transmission Date: 20111010
  Serious: Yes (Other)
  Sender: FDA-Public Use
  Company Number: US-ASTRAZENECA-2010SE27714

PATIENT
  Age: 70 Year
  Sex: Female
  Weight: 99.8 kg

DRUGS (2)
  1. SEROQUEL [Suspect]
     Route: 048
  2. SEROQUEL [Suspect]
     Indication: INITIAL INSOMNIA
     Route: 048

REACTIONS (8)
  - CARDIAC DISORDER [None]
  - CARDIAC FLUTTER [None]
  - CONVULSION [None]
  - HYPOAESTHESIA [None]
  - ABASIA [None]
  - MYOCARDIAL INFARCTION [None]
  - PARAESTHESIA [None]
  - BACK DISORDER [None]
